FAERS Safety Report 8381014-6 (Version None)
Quarter: 2012Q2

REPORT INFORMATION
  Report Type: 
  Country: None (occurrence: None)
  Receive Date: 20120523
  Receipt Date: 20120516
  Transmission Date: 20120825
  Serious: Yes (Other)
  Sender: FDA-Public Use
  Company Number: CHPA2012US010567

PATIENT
  Age: 77 Year
  Sex: Female

DRUGS (2)
  1. PREVACID 24 HR [Suspect]
     Indication: GASTROOESOPHAGEAL REFLUX DISEASE
     Dosage: 30 MG, QD
     Route: 048
  2. ASPIRIN [Concomitant]

REACTIONS (9)
  - HIATUS HERNIA [None]
  - ULCER [None]
  - INFECTION [None]
  - OFF LABEL USE [None]
  - OVERDOSE [None]
  - INCORRECT DRUG ADMINISTRATION DURATION [None]
  - ARTHRITIS [None]
  - DIARRHOEA [None]
  - THERAPEUTIC RESPONSE UNEXPECTED [None]
